FAERS Safety Report 21477764 (Version 2)
Quarter: 2023Q1

REPORT INFORMATION
  Report Type: Report from Study
  Country: US (occurrence: US)
  Receive Date: 20221019
  Receipt Date: 20230130
  Transmission Date: 20230418
  Serious: Yes (Other)
  Sender: FDA-Public Use
  Company Number: US-ABBVIE-22K-163-4366757-00

PATIENT
  Sex: Female

DRUGS (8)
  1. HUMIRA [Suspect]
     Active Substance: ADALIMUMAB
     Indication: Hidradenitis
     Dosage: HUMIRA 40MG/0.4ML CITRATE FREE
     Route: 058
     Dates: start: 20211119, end: 20220330
  2. HUMIRA [Suspect]
     Active Substance: ADALIMUMAB
     Dosage: HUMIRA 40MG/0.4ML CITRATE FREE
     Route: 058
     Dates: start: 202210
  3. SPIRONOLACTONE [Concomitant]
     Active Substance: SPIRONOLACTONE
     Indication: Hidradenitis
  4. CLINDAMYCIN [Concomitant]
     Active Substance: CLINDAMYCIN
     Indication: Hidradenitis
  5. MUPIROCIN [Concomitant]
     Active Substance: MUPIROCIN
     Indication: Hidradenitis
  6. TRIAMCINOLONE [Concomitant]
     Active Substance: TRIAMCINOLONE
     Indication: Hidradenitis
  7. PFIZER-BIONTECH COVID-19 VACCINE [Concomitant]
     Active Substance: TOZINAMERAN
     Indication: COVID-19 immunisation
     Dosage: ONE IN ONCE. 1ST DOSE
     Route: 030
     Dates: start: 20210706, end: 20210706
  8. PFIZER-BIONTECH COVID-19 VACCINE [Concomitant]
     Active Substance: TOZINAMERAN
     Indication: COVID-19 immunisation
     Dosage: ONE IN ONCE. 2ND DOSE
     Route: 030
     Dates: start: 20210806, end: 20210806

REACTIONS (9)
  - Hidradenitis [Not Recovered/Not Resolved]
  - Pain [Not Recovered/Not Resolved]
  - Furuncle [Unknown]
  - Hidradenitis [Unknown]
  - Pain in extremity [Not Recovered/Not Resolved]
  - Emotional distress [Not Recovered/Not Resolved]
  - Furuncle [Recovered/Resolved]
  - Illness [Unknown]
  - Pyrexia [Recovered/Resolved]

NARRATIVE: CASE EVENT DATE: 20220101
